FAERS Safety Report 7674604-7 (Version None)
Quarter: 2011Q3

REPORT INFORMATION
  Report Type: 
  Country: None (occurrence: None)
  Receive Date: 20110810
  Receipt Date: 20110728
  Transmission Date: 20111222
  Serious: Yes (Death)
  Sender: FDA-Public Use
  Company Number: US-ROCHE-793143

PATIENT
  Sex: Male

DRUGS (9)
  1. CAPECITABINE [Suspect]
     Dosage: 1000MG IN AM AND 1500MG IN PM
     Route: 048
     Dates: start: 20110426, end: 20110509
  2. RAD001 [Suspect]
     Route: 048
     Dates: start: 20110426, end: 20110512
  3. RAD001 [Suspect]
     Dosage: MOST RECENT DOSE PRIOR TO SAE 25 JUL 2011
     Route: 048
     Dates: start: 20110705, end: 20110725
  4. BEVACIZUMAB [Suspect]
     Dosage: CYCLE 1
     Route: 042
     Dates: start: 20110426, end: 20110426
  5. DEXAMETHASONE [Concomitant]
     Dates: start: 20110525, end: 20110730
  6. CAPECITABINE [Suspect]
     Dosage: CYCLE 3
     Route: 048
     Dates: start: 20110705, end: 20110725
  7. BEVACIZUMAB [Suspect]
     Dosage: CYCLE 3
     Route: 042
     Dates: start: 20110705, end: 20110725
  8. OXALIPLATIN [Suspect]
     Route: 042
     Dates: start: 20110426, end: 20110426
  9. OXALIPLATIN [Suspect]
     Dosage: CYCLE 3
     Route: 042
     Dates: start: 20110705, end: 20110725

REACTIONS (1)
  - GASTROINTESTINAL HAEMORRHAGE [None]
